FAERS Safety Report 22141387 (Version 4)
Quarter: 2024Q3

REPORT INFORMATION
  Report Type: Spontaneous
  Country: US (occurrence: US)
  Receive Date: 20230327
  Receipt Date: 20240718
  Transmission Date: 20241016
  Serious: Yes (Hospitalization, Other)
  Sender: SANOFI AVENTIS
  Company Number: US-SA-SAC20230324001351

PATIENT
  Age: 58 Year
  Sex: Female

DRUGS (1)
  1. DUPIXENT [Suspect]
     Active Substance: DUPILUMAB
     Indication: Asthma
     Dosage: 300 MG , QOW
     Route: 058
     Dates: start: 202302

REACTIONS (3)
  - Pneumonia [Unknown]
  - Herpes zoster [Unknown]
  - Rash [Unknown]

NARRATIVE: CASE EVENT DATE: 20230101
